FAERS Safety Report 25550039 (Version 1)
Quarter: 2025Q3

REPORT INFORMATION
  Report Type: Report from Study
  Country: EU (occurrence: EU)
  Receive Date: 20250714
  Receipt Date: 20250714
  Transmission Date: 20251020
  Serious: Yes (Other)
  Sender: BAYER HEALTHCARE LLC
  Company Number: None

PATIENT
  Age: 60 Year
  Sex: Male

DRUGS (4)
  1. NAPROXEN [Suspect]
     Active Substance: NAPROXEN
     Indication: Arthralgia
     Dates: start: 20241108, end: 20241114
  2. PANTOPRAZOLE SODIUM [Suspect]
     Active Substance: PANTOPRAZOLE SODIUM
     Indication: Prophylaxis against gastrointestinal ulcer
     Route: 048
     Dates: start: 20241108, end: 20241114
  3. CLOPIDOGREL [Suspect]
     Active Substance: CLOPIDOGREL BISULFATE
     Indication: Peripheral vascular disorder
     Dosage: 75 MG, QD
     Route: 048
     Dates: start: 20240401, end: 20241114
  4. ATORVASTATIN [Concomitant]
     Active Substance: ATORVASTATIN
     Route: 048

REACTIONS (3)
  - Cutaneous vasculitis [Recovered/Resolved]
  - Purpura [Recovered/Resolved]
  - Product substitution issue [Unknown]

NARRATIVE: CASE EVENT DATE: 20241113
